FAERS Safety Report 9063381 (Version 1)
Quarter: 2013Q1

REPORT INFORMATION
  Report Type: Report from Study
  Country: US (occurrence: US)
  Receive Date: 20130129
  Receipt Date: 20130129
  Transmission Date: 20140127
  Serious: No
  Sender: FDA-Public Use
  Company Number: US-ABBOTT-12P-163-0945972-00

PATIENT
  Age: 29 Year
  Sex: Female

DRUGS (5)
  1. HUMIRA 40 MG/0.8 ML PEN [Suspect]
     Indication: CROHN^S DISEASE
     Dosage: LOADING DOSE
     Dates: start: 20120611, end: 20120611
  2. HUMIRA 40 MG/0.8 ML PEN [Suspect]
  3. TRIVORA [Concomitant]
     Indication: CONTRACEPTION
  4. NEXIUM [Concomitant]
     Indication: GASTROOESOPHAGEAL REFLUX DISEASE
     Dosage: 40MG ONCE A DAY
  5. LIALDA [Concomitant]
     Indication: CROHN^S DISEASE
     Dosage: 1.2MG 4 TABS A DAY

REACTIONS (2)
  - Headache [Not Recovered/Not Resolved]
  - Headache [Not Recovered/Not Resolved]
